FAERS Safety Report 4619998-1 (Version None)
Quarter: 2005Q1

REPORT INFORMATION
  Report Type: 
  Country: None (occurrence: None)
  Receive Date: 20050324
  Receipt Date: 20050316
  Transmission Date: 20050727
  Serious: Yes (Hospitalization, Other)
  Sender: FDA-Public Use
  Company Number: 200510109BFR

PATIENT
  Age: 71 Year
  Sex: Male

DRUGS (6)
  1. MOXIFLOXACIN HYDROCHLORIDE [Suspect]
     Indication: LUNG DISORDER
     Dosage: 400 MG, TOTAL DAILY, ORAL
     Route: 048
     Dates: start: 20041006, end: 20041010
  2. MOXIFLOXACIN HYDROCHLORIDE [Suspect]
     Indication: LUNG DISORDER
     Dosage: 400 MG, TOTAL DAILY, ORAL
     Route: 048
     Dates: start: 20041111, end: 20041116
  3. CORDARONE [Concomitant]
  4. PREVISCAN [Concomitant]
  5. COVERSYL [Concomitant]
  6. ALDALIX [Concomitant]

REACTIONS (13)
  - ACUTE PULMONARY OEDEMA [None]
  - ARRHYTHMIA [None]
  - ATRIAL FLUTTER [None]
  - CARDIAC FAILURE [None]
  - CONDUCTION DISORDER [None]
  - DISEASE RECURRENCE [None]
  - FALL [None]
  - LUNG DISORDER [None]
  - MALAISE [None]
  - PLEURAL EFFUSION [None]
  - PLEURISY [None]
  - TACHYCARDIA [None]
  - THERAPY NON-RESPONDER [None]
